FAERS Safety Report 14985184 (Version 1)
Quarter: 2018Q2

REPORT INFORMATION
  Report Type: Spontaneous
  Country: DE (occurrence: DE)
  Receive Date: 20180607
  Receipt Date: 20180607
  Transmission Date: 20180711
  Serious: Yes (Hospitalization)
  Sender: FDA-Public Use
  Company Number: DE-TEVA-2018-DE-902942

PATIENT
  Age: 25 Year
  Sex: Female

DRUGS (2)
  1. SALBUTAMOL [Suspect]
     Active Substance: ALBUTEROL
     Dosage: , 0-0-0-5
     Route: 065
  2. LEVOTHYROXIN [Concomitant]
     Active Substance: LEVOTHYROXINE
     Dosage: 1-0-0-0

REACTIONS (6)
  - Extra dose administered [Unknown]
  - Accidental overdose [Unknown]
  - Panic reaction [Unknown]
  - Acute respiratory failure [Unknown]
  - Paraesthesia [Unknown]
  - Anxiety [Unknown]

NARRATIVE: CASE EVENT DATE: 20151011
